FAERS Safety Report 15257130 (Version 2)
Quarter: 2018Q3

REPORT INFORMATION
  Report Type: Report from Study
  Country: PL (occurrence: PL)
  Receive Date: 20180808
  Receipt Date: 20180813
  Transmission Date: 20181010
  Serious: Yes (Other)
  Sender: FDA-Public Use
  Company Number: PL-CHIESI USA INC.-PL-2018CHI000197

PATIENT
  Age: 0 Day
  Sex: Female
  Weight: 2.13 kg

DRUGS (3)
  1. KETAMINE [Concomitant]
     Active Substance: KETAMINE
     Indication: PRODUCT USED FOR UNKNOWN INDICATION
     Dosage: UNK
     Dates: start: 20180703
  2. CAFFEINE CITRATE. [Concomitant]
     Active Substance: CAFFEINE CITRATE
     Indication: PRODUCT USED FOR UNKNOWN INDICATION
     Dosage: UNK
     Dates: start: 20180703, end: 20180704
  3. CUROSURF [Suspect]
     Active Substance: PORACTANT ALFA
     Indication: NEONATAL RESPIRATORY DISTRESS SYNDROME
     Dosage: 5.2 ML, SINGLE
     Route: 039
     Dates: start: 20180703, end: 20180703

REACTIONS (2)
  - Drug administration error [Recovered/Resolved]
  - Neonatal hypoxia [Recovered/Resolved]

NARRATIVE: CASE EVENT DATE: 20180703
